FAERS Safety Report 4688479-1 (Version None)
Quarter: 2005Q2

REPORT INFORMATION
  Report Type: 
  Country: None (occurrence: None)
  Receive Date: 20050609
  Receipt Date: 20050524
  Transmission Date: 20051028
  Serious: Yes (Other)
  Sender: FDA-Public Use
  Company Number: 214737

PATIENT
  Age: 59 Year
  Sex: Male
  Weight: 64.6 kg

DRUGS (18)
  1. RITUXAN [Suspect]
     Indication: NON-HODGKIN'S LYMPHOMA
     Dosage: 640MG, IV DRIP
     Route: 041
     Dates: start: 20020130, end: 20020130
  2. RITUXAN [Suspect]
     Indication: NON-HODGKIN'S LYMPHOMA
     Dosage: 640MG, IV DRIP
     Route: 041
     Dates: start: 20020220, end: 20020220
  3. RITUXAN [Suspect]
     Indication: NON-HODGKIN'S LYMPHOMA
     Dosage: 640MG, IV DRIP
     Route: 041
     Dates: start: 20020320, end: 20020320
  4. RITUXAN [Suspect]
     Indication: NON-HODGKIN'S LYMPHOMA
     Dosage: 640MG, IV DRIP
     Route: 041
     Dates: start: 20020426, end: 20020426
  5. ENDOXAN (CLOPHOSPHAMIDE) [Suspect]
     Indication: NON-HODGKIN'S LYMPHOMA
     Dosage: 1300MG, IV DRIP
     Route: 041
     Dates: start: 20020201, end: 20020205
  6. ENDOXAN (CLOPHOSPHAMIDE) [Suspect]
     Indication: NON-HODGKIN'S LYMPHOMA
     Dosage: 1300MG, IV DRIP
     Route: 041
     Dates: start: 20020222, end: 20020426
  7. ADRIACIN (DOXORUBICIN HYDROCHLORIDE, DOXORUBICIN) [Suspect]
     Indication: NON-HODGKIN'S LYMPHOMA
     Dosage: 85MG, IV DRIP
     Route: 041
     Dates: start: 20020201, end: 20020205
  8. ADRIACIN (DOXORUBICIN HYDROCHLORIDE, DOXORUBICIN) [Suspect]
     Indication: NON-HODGKIN'S LYMPHOMA
     Dosage: 85MG, IV DRIP
     Route: 041
     Dates: start: 20020222, end: 20020226
  9. ONCOVIN [Suspect]
     Indication: NON-HODGKIN'S LYMPHOMA
     Dosage: 2 MG, IV DRIP
     Route: 041
     Dates: start: 20020201, end: 20020205
  10. ONCOVIN [Suspect]
     Indication: NON-HODGKIN'S LYMPHOMA
     Dosage: 2 MG, IV DRIP
     Route: 041
     Dates: start: 20020222, end: 20020226
  11. FLUDARABINE PHOSPHATE [Suspect]
     Indication: NON-HODGKIN'S LYMPHOMA
     Dosage: 40 MG, IV DRIP
     Route: 041
     Dates: start: 20020320, end: 20020324
  12. FLUDARABINE PHOSPHATE [Suspect]
     Indication: NON-HODGKIN'S LYMPHOMA
     Dosage: 40 MG, IV DRIP
     Route: 041
     Dates: start: 20020426, end: 20020430
  13. NOVANTRONE [Suspect]
     Indication: NON-HODGKIN'S LYMPHOMA
     Dosage: 17 MG, IV DRIP
     Route: 041
     Dates: start: 20020320, end: 20020324
  14. NOVANTRONE [Suspect]
     Indication: NON-HODGKIN'S LYMPHOMA
     Dosage: 17 MG, IV DRIP
     Route: 041
     Dates: start: 20020426, end: 20020430
  15. PREDNISONE [Concomitant]
  16. DECARDON (DEXAMETHASONE) [Concomitant]
  17. IBUPROFEN [Concomitant]
  18. POLARAMINE [Concomitant]

REACTIONS (1)
  - PANCYTOPENIA [None]
